FAERS Safety Report 17957205 (Version 2)
Quarter: 2020Q3

REPORT INFORMATION
  Report Type: Spontaneous
  Country: CN (occurrence: CN)
  Receive Date: 20200629
  Receipt Date: 20200702
  Transmission Date: 20201103
  Serious: Yes (Hospitalization, Other)
  Sender: FDA-Public Use
  Company Number: CN-PFIZER INC-2020247546

PATIENT
  Age: 42 Year
  Sex: Female

DRUGS (2)
  1. AZASETRON HYDROCHLORIDE [Suspect]
     Active Substance: AZASETRON HYDROCHLORIDE
     Indication: NEOPLASM MALIGNANT
     Dosage: 10 MILLIGRAM, QD
     Route: 041
     Dates: start: 20190118, end: 20190118
  2. PANTOLOC [Suspect]
     Active Substance: PANTOPRAZOLE SODIUM
     Indication: NEOPLASM MALIGNANT
     Dosage: 40 MILLIGRAM, QD
     Route: 041
     Dates: start: 20190118, end: 20190118

REACTIONS (6)
  - Vomiting [Recovering/Resolving]
  - Sneezing [Recovering/Resolving]
  - Abdominal pain [Recovering/Resolving]
  - Anaphylactic shock [Recovering/Resolving]
  - Nasal discomfort [Recovering/Resolving]
  - Pain of skin [Recovering/Resolving]

NARRATIVE: CASE EVENT DATE: 20190118
